FAERS Safety Report 15893940 (Version 1)
Quarter: 2019Q1

REPORT INFORMATION
  Report Type: Spontaneous
  Country: US (occurrence: US)
  Receive Date: 20190109
  Receipt Date: 20190109
  Transmission Date: 20190417
  Serious: No
  Sender: FDA-Public Use
  Company Number: None

PATIENT
  Age: 59 Year
  Sex: Female

DRUGS (2)
  1. TREMFYA [Suspect]
     Active Substance: GUSELKUMAB
     Indication: PSORIASIS
     Dosage: DOSE OR AMOUNT                FREQUENCY          ROUTE?1 INJECT 100MG SUBCUTANEOUSLY ON WEEK 0 AND WEEK 4 AS DIRECTED??INJECT 100MG SUBCUTANEOUSLY ON WEEK 0 AND WEEK 4 AS DIRECTED ???
     Route: 058
     Dates: start: 201806
  2. TREMFYA [Suspect]
     Active Substance: GUSELKUMAB
     Indication: PSORIATIC ARTHROPATHY

REACTIONS (2)
  - Rash [None]
  - Rash pruritic [None]
